FAERS Safety Report 22005375 (Version 1)
Quarter: 2023Q1

REPORT INFORMATION
  Report Type: Spontaneous
  Country: AU (occurrence: AU)
  Receive Date: 20230217
  Receipt Date: 20230217
  Transmission Date: 20230417
  Serious: Yes (Other)
  Sender: FDA-Public Use
  Company Number: AU-Atnahs Limited-ATNAHS20230200497

PATIENT
  Age: 23 Year
  Sex: Female

DRUGS (2)
  1. DIAZEPAM [Suspect]
     Active Substance: DIAZEPAM
     Indication: Product used for unknown indication
     Route: 048
  2. POTASSIUM CHLORIDE [Suspect]
     Active Substance: POTASSIUM CHLORIDE
     Indication: Product used for unknown indication
     Route: 048

REACTIONS (8)
  - Hyperkalaemia [Unknown]
  - Neuromyopathy [Unknown]
  - Bezoar [Unknown]
  - Drug interaction [Unknown]
  - Electrocardiogram abnormal [Unknown]
  - Gastrointestinal disorder [Unknown]
  - Overdose [Unknown]
  - Toxicity to various agents [Unknown]
